FAERS Safety Report 4790216-7 (Version None)
Quarter: 2005Q4

REPORT INFORMATION
  Report Type: 
  Country: None (occurrence: None)
  Receive Date: 20051005
  Receipt Date: 20051005
  Transmission Date: 20060501
  Serious: Yes (Death)
  Sender: FDA-Public Use
  Company Number: None

PATIENT
  Age: 4 Month
  Sex: Female
  Weight: 5.27 kg

DRUGS (4)
  1. TRIMETHOPRIM-SULFAMETHOXAZOLE [Suspect]
     Indication: PNEUMOCYSTIS JIROVECI PNEUMONIA
     Dosage: 3 ML QD PO
     Route: 048
     Dates: start: 20050829, end: 20050914
  2. TRIMETHOPRIM-SULFAMETHOXAZOLE [Suspect]
     Indication: PROPHYLAXIS
     Dosage: 3 ML QD PO
     Route: 048
     Dates: start: 20050829, end: 20050914
  3. ISONIAZID/PLACEBO (BE-TABS PHARMACEUTICALS LTD) [Suspect]
     Indication: ANTIBIOTIC PROPHYLAXIS
     Dosage: 100 MG QD PO
     Route: 048
     Dates: start: 20050829, end: 20050914
  4. MYCOSTATIN [Concomitant]

REACTIONS (1)
  - SUDDEN INFANT DEATH SYNDROME [None]
